FAERS Safety Report 5620610-3 (Version None)
Quarter: 2008Q1

REPORT INFORMATION
  Report Type: 
  Country: None (occurrence: None)
  Receive Date: 20080208
  Receipt Date: 20080117
  Transmission Date: 20080703
  Serious: Yes (Other)
  Sender: FDA-Public Use
  Company Number: CA-BAYER-200811974NA

PATIENT
  Age: 62 Year
  Sex: Female
  Weight: 82 kg

DRUGS (1)
  1. MAGNEVIST [Suspect]
     Dosage: AS USED: 18 ML
     Route: 042
     Dates: start: 20080117, end: 20080117

REACTIONS (2)
  - DYSPHONIA [None]
  - PHARYNGEAL OEDEMA [None]
